FAERS Safety Report 7154457-6 (Version None)
Quarter: 2010Q4

REPORT INFORMATION
  Report Type: 
  Country: None (occurrence: None)
  Receive Date: 20101213
  Receipt Date: 20101129
  Transmission Date: 20110411
  Serious: Yes (Life-Threatening, Other)
  Sender: FDA-Public Use
  Company Number: JP-MERCK-1009USA00060

PATIENT
  Age: 76 Year
  Sex: Male
  Weight: 78 kg

DRUGS (5)
  1. JANUVIA [Suspect]
     Indication: DIABETES MELLITUS
     Route: 048
     Dates: start: 20100625, end: 20100829
  2. EPADEL [Concomitant]
     Indication: CEREBRAL INFARCTION
     Route: 048
  3. PLETAL [Concomitant]
     Indication: CEREBRAL INFARCTION
     Route: 048
  4. ASPIRIN [Concomitant]
     Indication: CEREBRAL INFARCTION
     Route: 048
  5. LIPITOR [Concomitant]
     Indication: DYSLIPIDAEMIA
     Route: 048

REACTIONS (2)
  - PANCREATITIS ACUTE [None]
  - PANCYTOPENIA [None]
